FAERS Safety Report 4879815-1 (Version None)
Quarter: 2006Q1

REPORT INFORMATION
  Report Type: 
  Country: None (occurrence: None)
  Receive Date: 20060111
  Receipt Date: 20060103
  Transmission Date: 20060701
  Serious: Yes (Hospitalization)
  Sender: FDA-Public Use
  Company Number: 2006-01-0073

PATIENT
  Sex: Female

DRUGS (2)
  1. PEG-INTRON [Suspect]
  2. COPEGUS [Suspect]
     Dosage: ORAL
     Route: 048

REACTIONS (2)
  - THROMBOCYTOPENIA [None]
  - VAGINAL HAEMORRHAGE [None]
